FAERS Safety Report 24677414 (Version 2)
Quarter: 2024Q4

REPORT INFORMATION
  Report Type: Spontaneous
  Country: BR (occurrence: BR)
  Receive Date: 20241129
  Receipt Date: 20241210
  Transmission Date: 20250115
  Serious: Yes (Other)
  Sender: ROCHE
  Company Number: BR-002147023-PHHY2018BR105143

PATIENT

DRUGS (2)
  1. LUCENTIS [Suspect]
     Active Substance: RANIBIZUMAB
     Indication: Glaucoma
     Dosage: UNK
     Route: 050
  2. ANESTALCON [Concomitant]
     Indication: Local anaesthesia
     Dosage: UNK
     Route: 065

REACTIONS (3)
  - Pseudohypopyon [Unknown]
  - Eye inflammation [Unknown]
  - Off label use [Unknown]
